FAERS Safety Report 8332052-0 (Version None)
Quarter: 2012Q2

REPORT INFORMATION
  Report Type: 
  Country: None (occurrence: None)
  Receive Date: 20120502
  Receipt Date: 20120427
  Transmission Date: 20120825
  Serious: No
  Sender: FDA-Public Use
  Company Number: US-MERCK-1201USA02852

PATIENT
  Age: 16 Year
  Sex: Female
  Weight: 87 kg

DRUGS (3)
  1. SINGULAIR [Suspect]
     Indication: ASTHMA
     Route: 048
     Dates: start: 20080401, end: 20120216
  2. NASONEX [Concomitant]
     Route: 065
  3. ADVAIR DISKUS 100/50 [Concomitant]
     Route: 065

REACTIONS (7)
  - CRYING [None]
  - BACK PAIN [None]
  - HOSTILITY [None]
  - ANGER [None]
  - EMOTIONAL DISORDER [None]
  - MOOD SWINGS [None]
  - AGGRESSION [None]
